FAERS Safety Report 4497624-2 (Version None)
Quarter: 2004Q4

REPORT INFORMATION
  Report Type: 
  Country: None (occurrence: None)
  Receive Date: 20041105
  Receipt Date: 20041023
  Transmission Date: 20050328
  Serious: Yes (Hospitalization)
  Sender: FDA-Public Use
  Company Number: US-JNJFOC-20041007751

PATIENT
  Age: 52 Year
  Sex: Female

DRUGS (1)
  1. DURAGESIC [Suspect]
     Indication: DRUG USE FOR UNKNOWN INDICATION
     Route: 062
     Dates: start: 20040601, end: 20040901

REACTIONS (6)
  - ANOREXIA [None]
  - APTYALISM [None]
  - MALAISE [None]
  - NAUSEA [None]
  - PANIC ATTACK [None]
  - VOMITING [None]
